FAERS Safety Report 25100403 (Version 3)
Quarter: 2025Q2

REPORT INFORMATION
  Report Type: Spontaneous
  Country: US (occurrence: US)
  Receive Date: 20250320
  Receipt Date: 20250424
  Transmission Date: 20250717
  Serious: No
  Sender: PFIZER
  Company Number: US-PFIZER INC-PV202500033277

PATIENT
  Age: 83 Year
  Sex: Male

DRUGS (2)
  1. VYNDAMAX [Suspect]
     Active Substance: TAFAMIDIS
     Indication: Hereditary neuropathic amyloidosis
     Dosage: 61 MG, 1X/DAY
     Route: 048
     Dates: start: 202304
  2. VYNDAMAX [Suspect]
     Active Substance: TAFAMIDIS
     Indication: Cardiac amyloidosis

REACTIONS (3)
  - Hypoacusis [Unknown]
  - Cardiac disorder [Unknown]
  - Renal disorder [Unknown]
